FAERS Safety Report 13164261 (Version 1)
Quarter: 2017Q1

REPORT INFORMATION
  Report Type: Spontaneous
  Country: CN (occurrence: CN)
  Receive Date: 20170130
  Receipt Date: 20170130
  Transmission Date: 20170428
  Serious: Yes (Other)
  Sender: FDA-Public Use
  Company Number: CN-JNJFOC-20170125647

PATIENT

DRUGS (3)
  1. ITRACONAZOLE. [Suspect]
     Active Substance: ITRACONAZOLE
     Indication: SYSTEMIC MYCOSIS
     Dosage: ON DAY 1-2
     Route: 042
  2. ITRACONAZOLE. [Suspect]
     Active Substance: ITRACONAZOLE
     Indication: SYSTEMIC MYCOSIS
     Dosage: MAINTENANCE THERAPY
     Route: 048
  3. ITRACONAZOLE. [Suspect]
     Active Substance: ITRACONAZOLE
     Indication: SYSTEMIC MYCOSIS
     Dosage: FOR 2 WEEKS
     Route: 042

REACTIONS (1)
  - Torulopsis infection [Recovering/Resolving]
